FAERS Safety Report 5496781-9 (Version None)
Quarter: 2007Q4

REPORT INFORMATION
  Report Type: 
  Country: None (occurrence: None)
  Receive Date: 20071025
  Receipt Date: 20070814
  Transmission Date: 20080405
  Serious: No
  Sender: FDA-Public Use
  Company Number: A0670174A

PATIENT
  Age: 83 Year
  Sex: Male

DRUGS (4)
  1. ADVAIR DISKUS 100/50 [Suspect]
     Indication: EMPHYSEMA
     Route: 055
     Dates: start: 20070601
  2. SPIRIVA [Concomitant]
  3. FELODIPINE [Concomitant]
  4. VALSARTAN [Concomitant]

REACTIONS (3)
  - ALOPECIA [None]
  - DRY THROAT [None]
  - DYSPHONIA [None]
